FAERS Safety Report 7200279-7 (Version None)
Quarter: 2010Q4

REPORT INFORMATION
  Report Type: 
  Country: None (occurrence: None)
  Receive Date: 20101228
  Receipt Date: 20101213
  Transmission Date: 20110411
  Serious: Yes (Other)
  Sender: FDA-Public Use
  Company Number: B0685192A

PATIENT
  Sex: Female

DRUGS (10)
  1. PAXIL [Suspect]
     Indication: DEPRESSION
     Dosage: 10MG PER DAY
     Route: 048
     Dates: start: 20070724, end: 20101112
  2. AMLODIPINE [Concomitant]
     Indication: HYPERTENSION
     Dosage: 5MG PER DAY
     Route: 048
  3. OMEPRAL [Concomitant]
     Dosage: 20MG PER DAY
     Route: 048
  4. FUROSEMIDE [Concomitant]
     Dosage: 20MG PER DAY
     Route: 048
  5. METFORMIN HCL [Concomitant]
     Route: 048
  6. METHYCOBAL [Concomitant]
     Dosage: 3IUAX PER DAY
     Route: 048
  7. MAGLAX [Concomitant]
     Dosage: 2IUAX PER DAY
     Route: 048
  8. BASEN [Concomitant]
     Indication: DIABETES MELLITUS
     Dosage: .9MG PER DAY
     Route: 048
  9. STARSIS [Concomitant]
     Indication: DIABETES MELLITUS
     Dosage: 270MG PER DAY
     Route: 048
  10. MAGNESIUM OXIDE [Concomitant]
     Indication: CONSTIPATION
     Dosage: 1.5MG PER DAY
     Route: 048

REACTIONS (11)
  - AGGRESSION [None]
  - AGITATION [None]
  - ANGER [None]
  - ANXIETY [None]
  - DIZZINESS [None]
  - DRUG WITHDRAWAL SYNDROME [None]
  - HEADACHE [None]
  - MOOD ALTERED [None]
  - NAUSEA [None]
  - NIGHTMARE [None]
  - SCREAMING [None]
